FAERS Safety Report 20982024 (Version 4)
Quarter: 2022Q3

REPORT INFORMATION
  Report Type: Spontaneous
  Country: US (occurrence: US)
  Receive Date: 20220620
  Receipt Date: 20220720
  Transmission Date: 20221027
  Serious: Yes (Hospitalization, Other)
  Sender: FDA-Public Use
  Company Number: US-GILEAD-2022-0585527

PATIENT
  Age: 26 Year
  Sex: Female
  Weight: 73.5 kg

DRUGS (36)
  1. TECARTUS [Suspect]
     Active Substance: BREXUCABTAGENE AUTOLEUCEL
     Indication: B-cell type acute leukaemia
     Dosage: UNK
     Route: 065
     Dates: start: 20220531, end: 20220531
  2. ACETAMINOPHEN [Concomitant]
     Active Substance: ACETAMINOPHEN
     Dosage: 1000 MG
  3. ACETAMINOPHEN [Concomitant]
     Active Substance: ACETAMINOPHEN
     Dosage: 1000 MG
     Route: 048
  4. ACETAMINOPHEN [Concomitant]
     Active Substance: ACETAMINOPHEN
     Dosage: 650 MG
     Route: 048
  5. ACYCLOVIR [Concomitant]
     Active Substance: ACYCLOVIR
     Dosage: 400 MG
  6. ALLOPURINOL [Concomitant]
     Active Substance: ALLOPURINOL
     Dosage: 200 MG
  7. ALLOPURINOL [Concomitant]
     Active Substance: ALLOPURINOL
     Dosage: 300 MG
  8. ARIPIPRAZOLE [Concomitant]
     Active Substance: ARIPIPRAZOLE
  9. BENZONATATE [Concomitant]
     Active Substance: BENZONATATE
     Dosage: 100 MG CAPSULE
  10. CEFDINIR [Concomitant]
     Active Substance: CEFDINIR
     Dosage: 300 MG
     Route: 048
  11. CEFEPIME [Concomitant]
     Active Substance: CEFEPIME HYDROCHLORIDE
     Dosage: 2000 MG
     Route: 042
  12. CLONAZEPAM [Concomitant]
     Active Substance: CLONAZEPAM
     Dosage: 0.25 MG
     Route: 048
  13. DEXMEDETOMIDINE [Concomitant]
     Active Substance: DEXMEDETOMIDINE
     Dosage: 400 MCG/100 ML
  14. LOFIBRA [FENOFIBRATE] [Concomitant]
     Dosage: 134 MG
     Route: 048
  15. FENTANYL [Concomitant]
     Active Substance: FENTANYL
     Dosage: 2500 MCG/200 ML
  16. FILGRASTIM [Concomitant]
     Active Substance: FILGRASTIM
     Dosage: 480 MCG
  17. DIFLUCAN [Concomitant]
     Active Substance: FLUCONAZOLE
     Dosage: 400 MG
     Route: 048
  18. FLUDARABINE [Concomitant]
     Active Substance: FLUDARABINE PHOSPHATE
     Dosage: 43 MG
  19. PRIVIGEN [Concomitant]
     Active Substance: HUMAN IMMUNOGLOBULIN G
     Dosage: 30 MG
  20. PRIVIGEN [Concomitant]
     Active Substance: HUMAN IMMUNOGLOBULIN G
     Dosage: 20 MG
  21. INSULIN GLARGINE [Concomitant]
     Active Substance: INSULIN GLARGINE
  22. LANTUS [Concomitant]
     Active Substance: INSULIN GLARGINE
  23. CRESEMBA [Concomitant]
     Active Substance: ISAVUCONAZONIUM SULFATE
     Dosage: 372 MG
     Route: 048
  24. LEVOTHYROXINE [Concomitant]
     Active Substance: LEVOTHYROXINE
     Dosage: 200 MCG
     Route: 048
  25. LINEZOLID [Concomitant]
     Active Substance: LINEZOLID
     Dosage: 600 MG
     Route: 042
  26. LINEZOLID [Concomitant]
     Active Substance: LINEZOLID
     Dosage: 600 MG
     Route: 048
  27. MEROPENEM [Concomitant]
     Active Substance: MEROPENEM
     Dosage: 1 G
     Route: 042
  28. ONDANSETRON [Concomitant]
     Active Substance: ONDANSETRON
     Dosage: UNK
     Route: 042
  29. ONDANSETRON [Concomitant]
     Active Substance: ONDANSETRON
     Dosage: UNK
     Route: 048
  30. ZOSYN [Concomitant]
     Active Substance: PIPERACILLIN SODIUM\TAZOBACTAM SODIUM
     Dosage: 3.375 MG
  31. PROCHLORPERAZINE [Concomitant]
     Active Substance: PROCHLORPERAZINE
     Dosage: 5 MG
     Route: 042
  32. PROPOFOL [Concomitant]
     Active Substance: PROPOFOL
  33. VALACYCLOVIR [Concomitant]
     Active Substance: VALACYCLOVIR HYDROCHLORIDE
     Dosage: 500 MG
     Route: 048
  34. VANCOMYCIN [Concomitant]
     Active Substance: VANCOMYCIN
     Dosage: 1000 MG
     Route: 042
  35. VANCOMYCIN [Concomitant]
     Active Substance: VANCOMYCIN
     Dosage: 1500 MG
     Route: 042
  36. CYCLOPHOSPHAMIDE [Concomitant]
     Active Substance: CYCLOPHOSPHAMIDE
     Dosage: 1500 MG
     Route: 042

REACTIONS (10)
  - Respiratory rate increased [Recovered/Resolved]
  - Serum ferritin increased [Unknown]
  - Unresponsive to stimuli [Recovered/Resolved]
  - Neurotoxicity [Recovered/Resolved]
  - Cytokine release syndrome [Recovered/Resolved]
  - Mental status changes [Recovered/Resolved]
  - Pyrexia [Recovered/Resolved]
  - Lethargy [Recovered/Resolved]
  - Hypotension [Recovered/Resolved]
  - Tachycardia [Unknown]

NARRATIVE: CASE EVENT DATE: 20220601
